FAERS Safety Report 10265365 (Version 1)
Quarter: 2014Q2

REPORT INFORMATION
  Report Type: Spontaneous
  Country: US (occurrence: US)
  Receive Date: 20140627
  Receipt Date: 20140627
  Transmission Date: 20141212
  Serious: No
  Sender: FDA-Public Use
  Company Number: US-GLAXOSMITHKLINE-A1073802A

PATIENT
  Sex: Male

DRUGS (1)
  1. MEKINIST [Suspect]
     Dosage: 2MG UNKNOWN
     Route: 065

REACTIONS (2)
  - Rash vesicular [Unknown]
  - Accidental exposure to product [Unknown]
